FAERS Safety Report 18777863 (Version 3)
Quarter: 2021Q2

REPORT INFORMATION
  Report Type: Spontaneous
  Country: US (occurrence: US)
  Receive Date: 20210122
  Receipt Date: 20210423
  Transmission Date: 20210717
  Serious: No
  Sender: FDA-Public Use
  Company Number: 2020SGN03306

PATIENT
  Sex: Female

DRUGS (3)
  1. TUKYSA [Suspect]
     Active Substance: TUCATINIB
     Indication: BREAST CANCER FEMALE
     Dosage: UNK UNK, BID
  2. TUKYSA [Suspect]
     Active Substance: TUCATINIB
     Dosage: UNK
  3. HERCEPTIN [Concomitant]
     Active Substance: TRASTUZUMAB
     Indication: BREAST CANCER FEMALE
     Dosage: UNK, Q3WEEKS

REACTIONS (24)
  - Constipation [Unknown]
  - Unevaluable event [Unknown]
  - Onycholysis [Unknown]
  - Fatigue [Unknown]
  - Neuropathy peripheral [Unknown]
  - Red blood cell count decreased [Unknown]
  - Product dose omission issue [Unknown]
  - Asthenia [Unknown]
  - Cough [Not Recovered/Not Resolved]
  - Nausea [Unknown]
  - Tumour marker abnormal [Unknown]
  - Herpes zoster [Unknown]
  - Lung disorder [Unknown]
  - Nail disorder [Unknown]
  - Infection [Unknown]
  - Weight decreased [Unknown]
  - Joint swelling [Unknown]
  - Product physical issue [Unknown]
  - Pain [Unknown]
  - Device related infection [Unknown]
  - Chest discomfort [Unknown]
  - Memory impairment [Unknown]
  - Fluid replacement [Unknown]
  - Decreased appetite [Unknown]
